FAERS Safety Report 24257729 (Version 4)
Quarter: 2025Q2

REPORT INFORMATION
  Report Type: Report from Study
  Country: US (occurrence: US)
  Receive Date: 20240828
  Receipt Date: 20250618
  Transmission Date: 20250716
  Serious: Yes (Hospitalization, Other)
  Sender: BIOGEN
  Company Number: US-BIOGEN-2024BI01279486

PATIENT
  Age: 39 Year
  Sex: Female

DRUGS (16)
  1. VUMERITY [Suspect]
     Active Substance: DIROXIMEL FUMARATE
     Indication: Multiple sclerosis
     Route: 050
     Dates: start: 20240317
  2. VUMERITY [Suspect]
     Active Substance: DIROXIMEL FUMARATE
     Route: 050
     Dates: start: 20240328
  3. VUMERITY [Suspect]
     Active Substance: DIROXIMEL FUMARATE
     Route: 050
     Dates: start: 202404
  4. VUMERITY [Suspect]
     Active Substance: DIROXIMEL FUMARATE
     Route: 050
     Dates: start: 202403, end: 20241229
  5. VUMERITY [Suspect]
     Active Substance: DIROXIMEL FUMARATE
     Route: 050
     Dates: start: 202403
  6. VUMERITY [Suspect]
     Active Substance: DIROXIMEL FUMARATE
     Route: 050
     Dates: start: 20240409
  7. VUMERITY [Suspect]
     Active Substance: DIROXIMEL FUMARATE
     Route: 050
     Dates: start: 20240515
  8. VUMERITY [Suspect]
     Active Substance: DIROXIMEL FUMARATE
     Route: 050
     Dates: start: 20240711
  9. VUMERITY [Suspect]
     Active Substance: DIROXIMEL FUMARATE
     Route: 050
     Dates: start: 202410
  10. ALBUTEROL [Concomitant]
     Active Substance: ALBUTEROL
     Indication: Product used for unknown indication
     Dosage: 5 MG
     Route: 050
     Dates: start: 20201114
  11. LIDOCAINE PATCH [Concomitant]
     Active Substance: LIDOCAINE
     Indication: Product used for unknown indication
     Dosage: APPLY 1 PATCH TOPICALLY IN THE MORNING. LEAVE ON FOR 12 HOURS, THEN REMOVE AND DISCARD. - TOPICAL...
     Route: 050
     Dates: start: 20240105
  12. LYRICA [Concomitant]
     Active Substance: PREGABALIN
     Indication: Product used for unknown indication
     Dosage: TAKE 1 CAPSULE (50 MG) BY MOUTH IN THE MORNING, AFTERNOON, AND EVENING. - ORAL
     Route: 050
     Dates: start: 20240207, end: 20240913
  13. SEREVENT DISKUS [Concomitant]
     Active Substance: SALMETEROL XINAFOATE
     Indication: Product used for unknown indication
     Route: 050
     Dates: start: 20220309
  14. Zoster [Concomitant]
     Indication: Product used for unknown indication
     Route: 050
     Dates: start: 20240508
  15. INFLUENZA VIRUS VACCINE [Concomitant]
     Active Substance: INFLUENZA VIRUS VACCINE
     Indication: Product used for unknown indication
     Route: 050
     Dates: start: 20240901
  16. Covid vaccine [Concomitant]
     Indication: Product used for unknown indication
     Route: 050
     Dates: start: 20240901

REACTIONS (4)
  - COVID-19 [Recovered/Resolved]
  - Neuralgia [Not Recovered/Not Resolved]
  - Multiple sclerosis pseudo relapse [Unknown]
  - Anal abscess [Unknown]

NARRATIVE: CASE EVENT DATE: 20240701
